FAERS Safety Report 11685846 (Version 1)
Quarter: 2015Q4

REPORT INFORMATION
  Report Type: Spontaneous
  Country: GB (occurrence: GB)
  Receive Date: 20151030
  Receipt Date: 20151030
  Transmission Date: 20160304
  Serious: Yes (Other)
  Sender: FDA-Public Use
  Company Number: GB-TEVA-605165USA

PATIENT
  Age: 24 Year
  Sex: Female
  Weight: 58 kg

DRUGS (1)
  1. LEVONORGESTREL. [Suspect]
     Active Substance: LEVONORGESTREL
     Indication: POST COITAL CONTRACEPTION
     Route: 065
     Dates: start: 20151002, end: 20151002

REACTIONS (4)
  - Depressive symptom [Not Recovered/Not Resolved]
  - Menorrhagia [Recovering/Resolving]
  - Dysmenorrhoea [Recovered/Resolved]
  - Menstruation irregular [Recovered/Resolved]

NARRATIVE: CASE EVENT DATE: 20151006
